FAERS Safety Report 10652715 (Version 1)
Quarter: 2014Q4

REPORT INFORMATION
  Report Type: Spontaneous
  Country: MM (occurrence: MM)
  Receive Date: 20141215
  Receipt Date: 20141215
  Transmission Date: 20150529
  Serious: Yes (Other)
  Sender: FDA-Public Use
  Company Number: MM-BAYER-2014-183444

PATIENT
  Age: 50 Year
  Sex: Male

DRUGS (2)
  1. ULTRAVIST [Suspect]
     Active Substance: IOPROMIDE
     Indication: COMPUTERISED TOMOGRAM
     Dosage: 0.8 ML/KG, ONCE
     Route: 042
     Dates: start: 20141210, end: 20141210
  2. ULTRAVIST [Suspect]
     Active Substance: IOPROMIDE
     Indication: HEPATOCELLULAR CARCINOMA

REACTIONS (3)
  - Palpitations [Recovered/Resolved]
  - Chills [Recovered/Resolved]
  - Blood glucose decreased [Recovered/Resolved]

NARRATIVE: CASE EVENT DATE: 20141210
